FAERS Safety Report 10029421 (Version 1)
Quarter: 2014Q1

REPORT INFORMATION
  Report Type: Report from Study
  Country: US (occurrence: US)
  Receive Date: 20140322
  Receipt Date: 20140322
  Transmission Date: 20141002
  Serious: Yes (Hospitalization, Other)
  Sender: FDA-Public Use
  Company Number: PHEH2014US005453

PATIENT
  Age: 26 Year
  Sex: Male
  Weight: 63 kg

DRUGS (6)
  1. TOBI PODHALER [Suspect]
     Indication: CYSTIC FIBROSIS
     Dosage: 112 MG, BID
     Route: 055
     Dates: start: 2013
  2. TOBI PODHALER [Suspect]
     Indication: CYSTIC FIBROSIS LUNG
     Dosage: 112 MG, BID
     Route: 055
  3. PULMOZYME [Concomitant]
     Dosage: UNK UKN, UNK
  4. ALBUTEROL [Concomitant]
     Dosage: UNK UKN, UNK
  5. ENZYMES [Concomitant]
     Dosage: UNK UKN, UNK
  6. PREVACID [Concomitant]
     Dosage: UNK UKN, UNK

REACTIONS (2)
  - Post procedural complication [Unknown]
  - Hernia [Unknown]
